FAERS Safety Report 10245194 (Version 2)
Quarter: 2014Q2

REPORT INFORMATION
  Report Type: Spontaneous
  Country: US (occurrence: US)
  Receive Date: 20140618
  Receipt Date: 20140618
  Transmission Date: 20141212
  Serious: Yes (Other)
  Sender: FDA-Public Use
  Company Number: US-FRI-1000068170

PATIENT
  Age: 71 Year
  Sex: Female

DRUGS (1)
  1. LINZESS [Suspect]
     Dosage: 145 MCG

REACTIONS (5)
  - Syncope [Unknown]
  - Presyncope [Unknown]
  - Dehydration [Unknown]
  - Diarrhoea [Unknown]
  - Orthostatic hypotension [Unknown]
